FAERS Safety Report 25333627 (Version 1)
Quarter: 2025Q2

REPORT INFORMATION
  Report Type: Report from Study
  Country: US (occurrence: US)
  Receive Date: 20250520
  Receipt Date: 20250520
  Transmission Date: 20250716
  Serious: Yes (Other)
  Sender: TAKEDA
  Company Number: US-TAKEDA-2016BLT003956

PATIENT
  Age: 4 Year
  Sex: Male
  Weight: 20.862 kg

DRUGS (6)
  1. RECOMBINATE [Suspect]
     Active Substance: ANTIHEMOPHILIC FACTOR, HUMAN RECOMBINANT
     Indication: Prophylaxis
     Dosage: 450 INTERNATIONAL UNIT, QOD
     Dates: start: 20160510
  2. RECOMBINATE [Suspect]
     Active Substance: ANTIHEMOPHILIC FACTOR, HUMAN RECOMBINANT
     Indication: Haemorrhage
  3. RECOMBINATE [Suspect]
     Active Substance: ANTIHEMOPHILIC FACTOR, HUMAN RECOMBINANT
     Indication: Factor VIII deficiency
     Dosage: 2000 INTERNATIONAL UNIT, QOD
  4. HEPARIN [Concomitant]
     Active Substance: HEPARIN SODIUM
     Indication: Product used for unknown indication
  5. SALINE [Concomitant]
     Active Substance: SODIUM CHLORIDE
     Indication: Product used for unknown indication
  6. Lmx [Concomitant]
     Indication: Product used for unknown indication
     Route: 061

REACTIONS (6)
  - Traumatic haemorrhage [Recovered/Resolved]
  - Seasonal allergy [Unknown]
  - Allergy to animal [Unknown]
  - Gastrointestinal disorder [Unknown]
  - Gastrointestinal pain [Unknown]
  - Abdominal pain [Unknown]

NARRATIVE: CASE EVENT DATE: 20160529
